FAERS Safety Report 18221725 (Version 1)
Quarter: 2020Q3

REPORT INFORMATION
  Report Type: Spontaneous
  Country: US (occurrence: US)
  Receive Date: 20200902
  Receipt Date: 20200902
  Transmission Date: 20201103
  Serious: No
  Sender: FDA-Public Use
  Company Number: US-DECIPHERA PHARMACEUTICALS LLC-2020-US-000031

PATIENT
  Sex: Female

DRUGS (1)
  1. QINLOCK [Suspect]
     Active Substance: RIPRETINIB
     Indication: GASTROINTESTINAL STROMAL TUMOUR
     Dosage: 3 TABLETS DAILY AT NIGHT DAILY
     Route: 048

REACTIONS (3)
  - Retching [Unknown]
  - Dysphagia [Not Recovered/Not Resolved]
  - Product solubility abnormal [Unknown]
